FAERS Safety Report 23542412 (Version 2)
Quarter: 2024Q3

REPORT INFORMATION
  Report Type: Spontaneous
  Country: US (occurrence: US)
  Receive Date: 20240220
  Receipt Date: 20240805
  Transmission Date: 20241017
  Serious: Yes (Other)
  Sender: SANOFI AVENTIS
  Company Number: US-SA-SAC20240214001532

PATIENT
  Age: 57 Year
  Sex: Male
  Weight: 182.9 kg

DRUGS (1)
  1. CAPRELSA [Suspect]
     Active Substance: VANDETANIB
     Indication: Thyroid cancer
     Dosage: 200 MG, QD
     Route: 048
     Dates: start: 20230314

REACTIONS (3)
  - Neoplasm malignant [Unknown]
  - Arthralgia [Unknown]
  - Disease progression [Unknown]
